FAERS Safety Report 12057996 (Version 1)
Quarter: 2016Q1

REPORT INFORMATION
  Report Type: Report from Study
  Country: US (occurrence: US)
  Receive Date: 20160209
  Receipt Date: 20160209
  Transmission Date: 20160526
  Serious: No
  Sender: FDA-Public Use
  Company Number: US-ABBVIE-15P-163-1491440-00

PATIENT
  Sex: Female

DRUGS (3)
  1. HUMIRA [Suspect]
     Active Substance: ADALIMUMAB
     Indication: RHEUMATOID ARTHRITIS
     Route: 058
  2. TYLENOL [Concomitant]
     Active Substance: ACETAMINOPHEN
     Indication: PRODUCT USED FOR UNKNOWN INDICATION
     Route: 065
  3. VITAMIN D3 [Concomitant]
     Active Substance: CHOLECALCIFEROL
     Indication: PRODUCT USED FOR UNKNOWN INDICATION
     Route: 065

REACTIONS (13)
  - Injection site rash [Unknown]
  - Pruritus generalised [Unknown]
  - Drug ineffective [Not Recovered/Not Resolved]
  - Alopecia [Unknown]
  - Hypoaesthesia [Unknown]
  - Pain [Unknown]
  - Eczema [Unknown]
  - Injection site nodule [Unknown]
  - Fungal infection [Unknown]
  - Cystitis [Unknown]
  - Injection site bruising [Unknown]
  - Injection site pruritus [Unknown]
  - Candida infection [Unknown]
